FAERS Safety Report 8801321 (Version 2)
Quarter: 2013Q1

REPORT INFORMATION
  Report Type: Spontaneous
  Country: US (occurrence: US)
  Receive Date: 20120921
  Receipt Date: 20130122
  Transmission Date: 20140127
  Serious: Yes (Hospitalization)
  Sender: FDA-Public Use
  Company Number: US-BAYER-2012-098101

PATIENT
  Age: 19 Year
  Sex: Female
  Weight: 48.98 kg

DRUGS (6)
  1. YAZ [Suspect]
     Indication: MENSTRUATION IRREGULAR
  2. YASMIN [Suspect]
  3. OCELLA [Suspect]
  4. ANTIBIOTICS [Concomitant]
     Indication: BRONCHITIS
     Dosage: UNK
     Dates: start: 201005
  5. MORPHINE [Concomitant]
     Indication: PAIN
  6. OXYGEN [Concomitant]

REACTIONS (2)
  - Pulmonary embolism [Recovered/Resolved]
  - Injury [None]
